FAERS Safety Report 8480935-3 (Version None)
Quarter: 2012Q3

REPORT INFORMATION
  Report Type: 
  Country: None (occurrence: None)
  Receive Date: 20120702
  Receipt Date: 20120621
  Transmission Date: 20120928
  Serious: Yes (Other)
  Sender: FDA-Public Use
  Company Number: CO-JNJFOC-20120611934

PATIENT
  Sex: Male

DRUGS (5)
  1. REMICADE [Suspect]
     Route: 042
     Dates: start: 20100501
  2. FOLIC ACID [Concomitant]
     Route: 048
  3. REMICADE [Suspect]
     Indication: ANKYLOSING SPONDYLITIS
     Route: 042
     Dates: start: 20120607
  4. CYCLOSPORINE [Concomitant]
     Route: 048
  5. ACETAMINOPHEN [Concomitant]
     Route: 048

REACTIONS (6)
  - ERYTHEMA [None]
  - INFUSION RELATED REACTION [None]
  - HEADACHE [None]
  - RESPIRATORY DISTRESS [None]
  - TACHYCARDIA [None]
  - RASH [None]
